FAERS Safety Report 7096640-4 (Version None)
Quarter: 2010Q4

REPORT INFORMATION
  Report Type: 
  Country: None (occurrence: None)
  Receive Date: 20101111
  Receipt Date: 20101104
  Transmission Date: 20110411
  Serious: Yes (Other)
  Sender: FDA-Public Use
  Company Number: KR-B.I. PHARMACEUTICALS,INC./RIDGEFIELD-2010-CS-00589CS

PATIENT
  Age: 56 Year
  Sex: Female
  Weight: 47 kg

DRUGS (4)
  1. MOBIC CAPSULES 7.5MG [Suspect]
     Indication: RHEUMATOID ARTHRITIS
     Dosage: 7.5 MG
     Route: 048
     Dates: start: 20100425, end: 20100615
  2. MOBIC CAPSULES 7.5MG [Suspect]
     Dosage: 15 MG
     Route: 048
     Dates: end: 20100615
  3. SOLONDO/PREDNISOLONE [Concomitant]
     Indication: RHEUMATOID ARTHRITIS
     Route: 048
  4. MEDICATION FOR STOMACH AND BOWELS [Concomitant]
     Route: 048

REACTIONS (5)
  - DERMATITIS BULLOUS [None]
  - ERYTHEMA [None]
  - METRORRHAGIA [None]
  - PRURITUS [None]
  - PYREXIA [None]
